FAERS Safety Report 6165512-1 (Version None)
Quarter: 2009Q2

REPORT INFORMATION
  Report Type: 
  Country: None (occurrence: None)
  Receive Date: 20090423
  Receipt Date: 20090416
  Transmission Date: 20091009
  Serious: Yes (Other)
  Sender: FDA-Public Use
  Company Number: US-PFIZER INC-2004216774US

PATIENT
  Sex: Female

DRUGS (8)
  1. PROVERA [Suspect]
     Indication: HORMONE REPLACEMENT THERAPY
     Route: 048
     Dates: start: 19790101, end: 19850101
  2. PREMPRO [Suspect]
     Indication: HORMONE REPLACEMENT THERAPY
     Route: 065
     Dates: start: 19790101, end: 19850101
  3. PREMARIN [Suspect]
     Indication: HORMONE REPLACEMENT THERAPY
     Route: 065
     Dates: start: 19850101, end: 20020709
  4. ESTROGEN NOS [Suspect]
     Indication: HORMONE REPLACEMENT THERAPY
     Route: 065
  5. IBUPROFEN [Concomitant]
     Indication: ARTHRITIS
     Route: 065
  6. SYNTHROID [Concomitant]
     Indication: THYROID DISORDER
     Route: 065
     Dates: start: 19950101
  7. MAXZIDE [Concomitant]
     Indication: HYPERTENSION
     Dosage: UNK
     Dates: start: 19880101
  8. MAXZIDE [Concomitant]
     Indication: FLUID RETENTION

REACTIONS (1)
  - BREAST CANCER FEMALE [None]
